FAERS Safety Report 25232546 (Version 3)
Quarter: 2025Q4

REPORT INFORMATION
  Report Type: Report from Study
  Country: US (occurrence: US)
  Receive Date: 20250424
  Receipt Date: 20251003
  Transmission Date: 20260118
  Serious: Yes (Other)
  Sender: ABBVIE
  Company Number: US-ABBVIE-6239230

PATIENT
  Age: 82 Year
  Sex: Female
  Weight: 50 kg

DRUGS (2)
  1. CREON [Suspect]
     Active Substance: PANCRELIPASE AMYLASE\PANCRELIPASE LIPASE\PANCRELIPASE PROTEASE
     Indication: Pancreatic failure
     Dosage: STRENGTH: 24,000 LU?2 WITH MEALS 1 WITH SNACK
     Route: 048
     Dates: start: 20240313
  2. CREON [Suspect]
     Active Substance: PANCRELIPASE AMYLASE\PANCRELIPASE LIPASE\PANCRELIPASE PROTEASE
     Indication: Pancreatic failure
     Route: 048
     Dates: start: 20250930

REACTIONS (7)
  - Pelvic fracture [Recovering/Resolving]
  - Constipation [Unknown]
  - Rib fracture [Recovering/Resolving]
  - Abdominal pain upper [Recovering/Resolving]
  - Fall [Recovering/Resolving]
  - Abdominal pain upper [Unknown]
  - Cataract [Unknown]

NARRATIVE: CASE EVENT DATE: 20250101
